FAERS Safety Report 20472943 (Version 2)
Quarter: 2022Q1

REPORT INFORMATION
  Report Type: Spontaneous
  Country: UZ (occurrence: None)
  Receive Date: 20220215
  Receipt Date: 20220224
  Transmission Date: 20220423
  Serious: Yes (Hospitalization, Other)
  Sender: FDA-Public Use
  Company Number: UZ-ROCHE-3019719

PATIENT
  Sex: Male

DRUGS (1)
  1. RISDIPLAM [Suspect]
     Active Substance: RISDIPLAM
     Indication: Spinal muscular atrophy
     Dosage: 0.75 MG/ML FOR DAILY, 1.88 MG DAILY, QUANTITY OF DAYS PER VIALS: 30, QUANTITY OF VIALS: 1
     Route: 065
     Dates: start: 20211228, end: 20220127

REACTIONS (4)
  - Respiratory tract infection viral [Unknown]
  - Mechanical ventilation [Unknown]
  - Tracheostomy [Unknown]
  - Somnolence [Unknown]
